FAERS Safety Report 6460600-4 (Version None)
Quarter: 2009Q4

REPORT INFORMATION
  Report Type: 
  Country: None (occurrence: None)
  Receive Date: 20091125
  Receipt Date: 20091125
  Transmission Date: 20100525
  Serious: Yes (Life-Threatening, Hospitalization)
  Sender: FDA-Public Use
  Company Number: None

PATIENT
  Sex: Male

DRUGS (1)
  1. REBIF [Suspect]
     Indication: MULTIPLE SCLEROSIS
     Dosage: 44 MCG 3 TIMES A WEEK SUBCUTANEOUSLY INJECTED
     Route: 058
     Dates: start: 20050101, end: 20090101

REACTIONS (1)
  - MYOCARDIAL INFARCTION [None]
